FAERS Safety Report 9679460 (Version 1)
Quarter: 2013Q4

REPORT INFORMATION
  Report Type: Spontaneous
  Country: US (occurrence: US)
  Receive Date: 20131109
  Receipt Date: 20131109
  Transmission Date: 20140711
  Serious: No
  Sender: FDA-Public Use
  Company Number: US-SANOFI-AVENTIS-2013SA050127

PATIENT
  Age: 39 Year
  Sex: Female

DRUGS (1)
  1. ALLEGRA-D, 24 HR [Suspect]
     Indication: SINUS DISORDER
     Route: 065
     Dates: start: 20130514, end: 20130514

REACTIONS (4)
  - Feeling abnormal [Unknown]
  - Dizziness [Unknown]
  - Insomnia [Unknown]
  - Fatigue [Unknown]
